FAERS Safety Report 11288405 (Version 1)
Quarter: 2015Q3

REPORT INFORMATION
  Report Type: Spontaneous
  Country: US (occurrence: US)
  Receive Date: 20150721
  Receipt Date: 20150721
  Transmission Date: 20151125
  Serious: No
  Sender: FDA-Public Use
  Company Number: US-UNITED THERAPEUTICS-UNT-2015-003026

PATIENT
  Sex: Female
  Weight: 61.22 kg

DRUGS (2)
  1. REMODULIN [Suspect]
     Active Substance: TREPROSTINIL
     Indication: PULMONARY ARTERIAL HYPERTENSION
     Dosage: 0.00125 ?G/KG/MIN, CONTINUING
     Route: 058
     Dates: start: 20150221, end: 20150317
  2. ELIQUIS [Concomitant]
     Active Substance: APIXABAN
     Indication: PRODUCT USED FOR UNKNOWN INDICATION

REACTIONS (4)
  - Abdominal discomfort [Unknown]
  - Treatment noncompliance [Unknown]
  - Headache [Unknown]
  - Therapy cessation [Unknown]
